FAERS Safety Report 17218396 (Version 1)
Quarter: 2019Q4

REPORT INFORMATION
  Report Type: Spontaneous
  Country: AT (occurrence: AT)
  Receive Date: 20191231
  Receipt Date: 20191231
  Transmission Date: 20200122
  Serious: Yes (Other)
  Sender: FDA-Public Use
  Company Number: AT-BAXTER-2019BAX021786

PATIENT
  Age: 67 Year
  Sex: Male

DRUGS (5)
  1. FILGRASTIM, GRANULOCYTE COLONY-STIMULATING FACTOR [Concomitant]
     Indication: PROPHYLAXIS
     Dosage: THROUGHOUT THE DURATION OF TREATMENT, GCSF SUPPORT
     Route: 065
  2. VINBLASTINE [Suspect]
     Active Substance: VINBLASTINE
     Indication: HODGKIN^S DISEASE
     Dosage: CYCLICAL,
     Route: 065
  3. DACARBAZINE. [Suspect]
     Active Substance: DACARBAZINE
     Indication: HODGKIN^S DISEASE
     Dosage: 1 CYCLICAL,
     Route: 065
  4. DOXIL [Suspect]
     Active Substance: DOXORUBICIN HYDROCHLORIDE
     Indication: HODGKIN^S DISEASE
     Dosage: AVD (1 CYCLICAL), ONGO
     Route: 065
  5. ADCETRIS [Suspect]
     Active Substance: BRENTUXIMAB VEDOTIN
     Indication: HODGKIN^S DISEASE
     Dosage: CYCLICAL
     Route: 065

REACTIONS (3)
  - Anaemia [Recovered/Resolved]
  - Polyneuropathy [Not Recovered/Not Resolved]
  - Constipation [Recovered/Resolved]
